FAERS Safety Report 5458110-6 (Version None)
Quarter: 2007Q3

REPORT INFORMATION
  Report Type: 
  Country: None (occurrence: None)
  Receive Date: 20070919
  Receipt Date: 20070910
  Transmission Date: 20080115
  Serious: Yes (Hospitalization, Other)
  Sender: FDA-Public Use
  Company Number: DE-JNJFOC-20070901955

PATIENT
  Age: 38 Year
  Sex: Male

DRUGS (1)
  1. REMICADE [Suspect]
     Indication: COLITIS ULCERATIVE
     Dosage: RECEIVED 3 DOSINGS ON UNKNOWN DATES
     Route: 042

REACTIONS (6)
  - ACUTE ABDOMEN [None]
  - LARGE INTESTINE PERFORATION [None]
  - LYMPHOMA [None]
  - PERITONITIS [None]
  - VENA CAVA THROMBOSIS [None]
  - VENOUS THROMBOSIS [None]
